FAERS Safety Report 8915247 (Version 3)
Quarter: 2013Q1

REPORT INFORMATION
  Report Type: Spontaneous
  Country: DK (occurrence: DK)
  Receive Date: 20121119
  Receipt Date: 20130308
  Transmission Date: 20140127
  Serious: Yes (Hospitalization)
  Sender: FDA-Public Use
  Company Number: DK-ROCHE-1155503

PATIENT
  Age: 52 Year
  Sex: Male
  Weight: 138 kg

DRUGS (2)
  1. MABTHERA [Suspect]
     Indication: RHEUMATOID ARTHRITIS
     Dosage: DOSE : 2 INFUSIONS EVERY SIX MONTHS
     Route: 042
     Dates: start: 20110526
  2. METEX [Suspect]
     Indication: RHEUMATOID ARTHRITIS
     Dosage: DOSE INTERVAL : EVERY WEEK
     Route: 058
     Dates: start: 20080326

REACTIONS (2)
  - Neoplasm [Recovered/Resolved]
  - Metastatic squamous cell carcinoma [Recovered/Resolved]
